FAERS Safety Report 6862714-3 (Version None)
Quarter: 2010Q3

REPORT INFORMATION
  Report Type: 
  Country: None (occurrence: None)
  Receive Date: 20100721
  Receipt Date: 20100716
  Transmission Date: 20110219
  Serious: Yes (Hospitalization)
  Sender: FDA-Public Use
  Company Number: NL-ROCHE-714833

PATIENT
  Age: 40 Year
  Sex: Female

DRUGS (4)
  1. CAPECITABINE [Suspect]
     Dosage: EVERY DAY FOR 2 WEEKS IN A 3 WEEK CYCLE.  INITIAL THREE COURSES OF CAPECITABINE THERAPY.
     Route: 048
  2. CAPECITABINE [Suspect]
     Dosage: EVERY DAY FOR 2 WEEKS IN A 3 WEEK CYCLE.  RE-CHALLENGE DONE
     Route: 048
  3. OXALIPLATIN [Concomitant]
     Dosage: INITIAL THREE COURSES OF OXALIPLATIN THERAPY.
  4. OXALIPLATIN [Concomitant]
     Dosage: RE-CHALLENGE DONE.

REACTIONS (1)
  - PANCREATITIS ACUTE [None]
